FAERS Safety Report 6055306-X (Version None)
Quarter: 2009Q1

REPORT INFORMATION
  Report Type: 
  Country: None (occurrence: None)
  Receive Date: 20090128
  Receipt Date: 20090122
  Transmission Date: 20090719
  Serious: Yes (Other)
  Sender: FDA-Public Use
  Company Number: US-PFIZER INC-2008050850

PATIENT
  Sex: Male
  Weight: 75.3 kg

DRUGS (2)
  1. CHANTIX [Suspect]
     Indication: SMOKING CESSATION THERAPY
     Dosage: UNK
     Dates: start: 20080514, end: 20080616
  2. CHANTIX [Suspect]
     Indication: TOBACCO ABUSE

REACTIONS (11)
  - ANOREXIA [None]
  - CHILLS [None]
  - DRY MOUTH [None]
  - DRY THROAT [None]
  - DYSPNOEA [None]
  - FEELING COLD [None]
  - FEELING HOT [None]
  - INSOMNIA [None]
  - PHARYNGEAL OEDEMA [None]
  - RASH [None]
  - SURGERY [None]
